FAERS Safety Report 16436935 (Version 1)
Quarter: 2019Q2

REPORT INFORMATION
  Report Type: Report from Study
  Country: US (occurrence: US)
  Receive Date: 20190614
  Receipt Date: 20190614
  Transmission Date: 20190711
  Serious: Yes (Hospitalization)
  Sender: FDA-Public Use
  Company Number: US-ACTELION-A-US2019-191562

PATIENT
  Sex: Male
  Weight: 70.75 kg

DRUGS (1)
  1. OPSUMIT [Suspect]
     Active Substance: MACITENTAN
     Indication: PULMONARY HYPERTENSION
     Dosage: 10 MG, QD
     Route: 048

REACTIONS (8)
  - Cough [Unknown]
  - Pneumonia [Unknown]
  - Pyrexia [Recovered/Resolved]
  - Chest discomfort [Unknown]
  - Paranasal sinus discomfort [Unknown]
  - Headache [Unknown]
  - Chest pain [Unknown]
  - Sinus congestion [Unknown]
